FAERS Safety Report 4711154-1 (Version None)
Quarter: 2005Q3

REPORT INFORMATION
  Report Type: 
  Country: None (occurrence: None)
  Receive Date: 20050708
  Receipt Date: 20050705
  Transmission Date: 20060218
  Serious: Yes (Other)
  Sender: FDA-Public Use
  Company Number: HQWYE626523JUN05

PATIENT
  Age: 29 Year
  Sex: Male

DRUGS (2)
  1. EFFEXOR XR [Suspect]
     Indication: DEPRESSION
     Dosage: 2 CAPSULES (75 MG EACH) (OVERDOSE AMOUNT) ORAL
     Route: 048
     Dates: start: 20050601, end: 20050601
  2. ETHANOL (ETHANOL, ) [Suspect]
     Dosage: 1 BOTTLE VODKA (OVERDOSE AMOUNT)
     Dates: start: 20050601, end: 20050601

REACTIONS (3)
  - INTENTIONAL MISUSE [None]
  - MULTIPLE DRUG OVERDOSE [None]
  - PSYCHOTIC DISORDER [None]
